FAERS Safety Report 8264470-3 (Version None)
Quarter: 2012Q2

REPORT INFORMATION
  Report Type: 
  Country: None (occurrence: None)
  Receive Date: 20120406
  Receipt Date: 20120326
  Transmission Date: 20120825
  Serious: Yes (Other)
  Sender: FDA-Public Use
  Company Number: GB-JNJFOC-20120314209

PATIENT
  Age: 75 Year
  Sex: Male

DRUGS (2)
  1. REMICADE [Suspect]
     Indication: RHEUMATOID ARTHRITIS
     Route: 042
     Dates: start: 20021108, end: 20111125
  2. METHOTREXATE [Concomitant]
     Dates: start: 19921209, end: 20120316

REACTIONS (1)
  - COLON CANCER [None]
